FAERS Safety Report 26008728 (Version 2)
Quarter: 2025Q4

REPORT INFORMATION
  Report Type: Spontaneous
  Country: JP (occurrence: JP)
  Receive Date: 20251106
  Receipt Date: 20251210
  Transmission Date: 20260117
  Serious: Yes (Other)
  Sender: AMGEN
  Company Number: JP-KYOWAKIRIN-2025KK021115

PATIENT
  Age: 86 Year
  Sex: Male

DRUGS (1)
  1. DARBEPOETIN ALFA [Suspect]
     Active Substance: DARBEPOETIN ALFA
     Indication: Nephrogenic anaemia
     Dosage: 180 UG, 1X/WEEK
     Route: 010

REACTIONS (3)
  - Myelodysplastic syndrome [Unknown]
  - Off label use [Unknown]
  - Therapeutic product effect incomplete [Unknown]
